FAERS Safety Report 12283555 (Version 2)
Quarter: 2016Q2

REPORT INFORMATION
  Report Type: Spontaneous
  Country: JP (occurrence: JP)
  Receive Date: 20160419
  Receipt Date: 20160624
  Transmission Date: 20160815
  Serious: Yes (Other)
  Sender: FDA-Public Use
  Company Number: JP-MYLANLABS-2016M1015218

PATIENT

DRUGS (3)
  1. ETOPOSIDE. [Suspect]
     Active Substance: ETOPOSIDE
     Indication: NEUROBLASTOMA
     Route: 041
  2. MELPHALAN [Suspect]
     Active Substance: MELPHALAN
     Indication: NEUROBLASTOMA
     Route: 041
  3. CARBOPLATIN. [Suspect]
     Active Substance: CARBOPLATIN
     Indication: NEUROBLASTOMA
     Route: 041

REACTIONS (4)
  - Thrombotic microangiopathy [Unknown]
  - Retinal haemorrhage [Unknown]
  - Hypertension [Unknown]
  - Pulmonary alveolar haemorrhage [Unknown]
